FAERS Safety Report 15842632 (Version 2)
Quarter: 2019Q1

REPORT INFORMATION
  Report Type: Spontaneous
  Country: SE (occurrence: SE)
  Receive Date: 20190118
  Receipt Date: 20190212
  Transmission Date: 20190417
  Serious: Yes (Other)
  Sender: FDA-Public Use
  Company Number: SE-TEVA-2019-SE-997525

PATIENT
  Sex: Male

DRUGS (8)
  1. FENATOIN [Concomitant]
     Dosage: 1 + 1.5 TABLET/DAY
     Route: 048
  2. ZYRLEX [Concomitant]
     Route: 048
  3. DOXYFERM [Suspect]
     Active Substance: DOXYCYCLINE
     Indication: SINUSITIS
     Dosage: 200 MILLIGRAM DAILY;
     Route: 048
  4. TEGRETOL [Concomitant]
     Active Substance: CARBAMAZEPINE
     Dosage: 2+ 2.5 TABLETS/DAY
     Route: 048
  5. TRAMADOL. [Suspect]
     Active Substance: TRAMADOL
     Route: 048
  6. STESOLID [Suspect]
     Active Substance: DIAZEPAM
     Dosage: 0.5 + 0.5 + 0.5 TABLET/DAY
     Route: 048
  7. ZOPICLONE [Suspect]
     Active Substance: ZOPICLONE
     Route: 048
  8. PANODIL [Concomitant]
     Active Substance: ACETAMINOPHEN
     Route: 048

REACTIONS (2)
  - Epilepsy [Recovered/Resolved]
  - Fatigue [Unknown]
